FAERS Safety Report 6071884-9 (Version None)
Quarter: 2009Q1

REPORT INFORMATION
  Report Type: 
  Country: None (occurrence: None)
  Receive Date: 20090210
  Receipt Date: 20090129
  Transmission Date: 20090719
  Serious: Yes (Death)
  Sender: FDA-Public Use
  Company Number: GB-WYE-G02824308

PATIENT
  Sex: Male

DRUGS (1)
  1. BENEFIX [Suspect]
     Indication: FACTOR IX DEFICIENCY
     Dosage: 3000-5000 UNITS, AS REQUIRED
     Route: 042

REACTIONS (1)
  - HAEMORRHAGE INTRACRANIAL [None]
